FAERS Safety Report 7807366-0 (Version None)
Quarter: 2011Q4

REPORT INFORMATION
  Report Type: 
  Country: None (occurrence: None)
  Receive Date: 20111011
  Receipt Date: 20111007
  Transmission Date: 20120403
  Serious: No
  Sender: FDA-Public Use
  Company Number: US-B.I. PHARMACEUTICALS,INC./RIDGEFIELD-2011-BP-23812BP

PATIENT
  Sex: Female

DRUGS (4)
  1. NEURONTIN [Concomitant]
     Indication: PAIN
  2. PRADAXA [Suspect]
     Indication: ATRIAL FIBRILLATION
     Dosage: 300 MG
     Route: 048
     Dates: start: 20110301
  3. SYNTHROID [Concomitant]
     Indication: HYPOTHYROIDISM
  4. XANAX [Concomitant]
     Indication: DEPRESSION

REACTIONS (2)
  - URINARY RETENTION [None]
  - INSOMNIA [None]
